FAERS Safety Report 26062460 (Version 3)
Quarter: 2025Q4

REPORT INFORMATION
  Report Type: Report from Study
  Country: CL (occurrence: CL)
  Receive Date: 20251119
  Receipt Date: 20251123
  Transmission Date: 20260117
  Serious: Yes (Other)
  Sender: JOHNSON AND JOHNSON
  Company Number: CL-JNJFOC-20250938730

PATIENT
  Age: 62 Year
  Sex: Female

DRUGS (1)
  1. SIMPONI [Suspect]
     Active Substance: GOLIMUMAB
     Indication: Psoriatic arthropathy
     Dosage: LAST APPLICATION DATE: 12-AUG-2025
     Route: 058
     Dates: start: 20240424

REACTIONS (9)
  - Carcinoembryonic antigen increased [Unknown]
  - Psoriatic arthropathy [Unknown]
  - Aspartate aminotransferase increased [Unknown]
  - Alanine aminotransferase increased [Unknown]
  - Red blood cell count increased [Unknown]
  - Amylase increased [Unknown]
  - Lipase increased [Unknown]
  - Liver disorder [Unknown]
  - Drug ineffective [Unknown]

NARRATIVE: CASE EVENT DATE: 20251001
